FAERS Safety Report 20499493 (Version 1)
Quarter: 2022Q1

REPORT INFORMATION
  Report Type: Spontaneous
  Country: TR (occurrence: TR)
  Receive Date: 20220222
  Receipt Date: 20220222
  Transmission Date: 20220423
  Serious: Yes (Other)
  Sender: FDA-Public Use
  Company Number: TR-SUN PHARMACEUTICAL INDUSTRIES LTD-2022RR-327217

PATIENT
  Age: 63 Year
  Sex: Female

DRUGS (1)
  1. PREGABALIN [Suspect]
     Active Substance: PREGABALIN
     Indication: Radiculopathy
     Dosage: 300 MILLIGRAM, DAILY, 2X150 MG
     Route: 065

REACTIONS (1)
  - Chorioretinopathy [Unknown]
